FAERS Safety Report 8893587 (Version 1)
Quarter: 2012Q4

REPORT INFORMATION
  Report Type: 
  Country: US (occurrence: US)
  Receive Date: 20121107
  Receipt Date: 20121107
  Transmission Date: 20130627
  Serious: No
  Sender: FDA-Public Use
  Company Number: US-AMGEN-USASP2011060656

PATIENT
  Age: 54 Year
  Sex: Female

DRUGS (5)
  1. ENBREL [Suspect]
     Indication: PRODUCT USED FOR UNKNOWN INDICATION
     Dosage: 25 mg, 2 times/wk
     Route: 058
  2. NAPROXEN [Concomitant]
     Dosage: 375 mg, UNK
  3. ATACAND [Concomitant]
     Dosage: 32 mg, UNK
  4. SYNTHROID [Concomitant]
     Dosage: 100 mug, UNK
  5. CO Q 10 [Concomitant]
     Dosage: 100 mg, UNK

REACTIONS (1)
  - Injection site pain [Unknown]
